FAERS Safety Report 19817103 (Version 2)
Quarter: 2021Q3

REPORT INFORMATION
  Report Type: Spontaneous
  Country: US (occurrence: US)
  Receive Date: 20210910
  Receipt Date: 20210914
  Transmission Date: 20211014
  Serious: Yes (Other)
  Sender: FDA-Public Use
  Company Number: US-UNITED THERAPEUTICS-UNT-2021-017489

PATIENT
  Sex: Male

DRUGS (5)
  1. KETAMINE [Suspect]
     Active Substance: KETAMINE
     Dosage: UNK, (DECREASED BY 25 %; INFUSIONS)
     Route: 065
     Dates: start: 20210903, end: 20210907
  2. MORPHINE [Suspect]
     Active Substance: MORPHINE
     Dosage: UNK, (DECREASED BY 25 %; INFUSIONS)
     Route: 065
     Dates: start: 20210903
  3. MORPHINE [Suspect]
     Active Substance: MORPHINE
     Indication: PRODUCT USED FOR UNKNOWN INDICATION
     Dosage: UNK
     Route: 065
     Dates: end: 20210903
  4. DINUTUXIMAB [Suspect]
     Active Substance: DINUTUXIMAB
     Indication: PRODUCT USED FOR UNKNOWN INDICATION
     Dosage: UNK, CYCLICAL, (CYCLE 4)
     Route: 041
     Dates: end: 20210903
  5. KETAMINE [Suspect]
     Active Substance: KETAMINE
     Indication: PRODUCT USED FOR UNKNOWN INDICATION
     Dosage: UNK
     Route: 065
     Dates: end: 20210903

REACTIONS (5)
  - Hallucination [Recovering/Resolving]
  - Mydriasis [Unknown]
  - Aggression [Unknown]
  - Unintentional medical device removal [Unknown]
  - Confusional state [Unknown]

NARRATIVE: CASE EVENT DATE: 20210902
